FAERS Safety Report 6178304-4 (Version None)
Quarter: 2009Q2

REPORT INFORMATION
  Report Type: 
  Country: None (occurrence: None)
  Receive Date: 20090504
  Receipt Date: 20090428
  Transmission Date: 20091009
  Serious: Yes (Hospitalization, Disabling)
  Sender: FDA-Public Use
  Company Number: GB-SP-2009-01656

PATIENT
  Age: 73 Year
  Sex: Male

DRUGS (8)
  1. IMMUCYST [Suspect]
     Indication: BLADDER CANCER
     Route: 043
     Dates: start: 20080130, end: 20090210
  2. IMMUCYST [Suspect]
     Route: 043
     Dates: start: 20080130, end: 20090210
  3. IMMUCYST [Suspect]
     Route: 043
     Dates: start: 20080130, end: 20090210
  4. IMMUCYST [Suspect]
     Route: 043
     Dates: start: 20080130, end: 20090210
  5. NAPROXEN [Concomitant]
  6. OXYBUTYNIN CHLORIDE [Concomitant]
  7. CO-AMOXICLAV [Concomitant]
  8. TRIMETHOPRIM [Concomitant]

REACTIONS (8)
  - BLADDER SPASM [None]
  - MIGRAINE [None]
  - NIGHT SWEATS [None]
  - POLLAKIURIA [None]
  - RASH [None]
  - TRANSIENT ISCHAEMIC ATTACK [None]
  - URGE INCONTINENCE [None]
  - VISUAL IMPAIRMENT [None]
